FAERS Safety Report 8814374 (Version 1)
Quarter: 2012Q4

REPORT INFORMATION
  Report Type: Spontaneous
  Country: GB (occurrence: None)
  Receive Date: 20120925
  Receipt Date: 20120925
  Transmission Date: 20130627
  Serious: Yes (Other)
  Sender: FDA-Public Use
  Company Number: FK201202763

PATIENT
  Age: 64 Year
  Sex: Male

DRUGS (2)
  1. METHOTREXATE [Concomitant]
     Indication: RHEUMATOID ARTHRITIS
  2. STEROIDS [Suspect]
     Indication: RHEUMATOID VASCULITIS

REACTIONS (3)
  - Visceral leishmaniasis [None]
  - Pancytopenia [None]
  - Gingival bleeding [None]
